FAERS Safety Report 21625529 (Version 1)
Quarter: 2022Q4

REPORT INFORMATION
  Report Type: Spontaneous
  Country: PT (occurrence: PT)
  Receive Date: 20221122
  Receipt Date: 20221122
  Transmission Date: 20230113
  Serious: Yes (Hospitalization, Other)
  Sender: FDA-Public Use
  Company Number: PT-LABALTER-202203532

PATIENT
  Age: 53 Year
  Sex: Female

DRUGS (2)
  1. TOPIRAMATE [Suspect]
     Active Substance: TOPIRAMATE
     Indication: Product used for unknown indication
     Dosage: UNK
     Route: 065
  2. PALIPERIDONE [Suspect]
     Active Substance: PALIPERIDONE
     Indication: Product used for unknown indication

REACTIONS (2)
  - Coma [Recovered/Resolved]
  - Poisoning deliberate [Unknown]
